FAERS Safety Report 6826621-4 (Version None)
Quarter: 2010Q3

REPORT INFORMATION
  Report Type: 
  Country: None (occurrence: None)
  Receive Date: 20100709
  Receipt Date: 20100630
  Transmission Date: 20110219
  Serious: Yes (Other)
  Sender: FDA-Public Use
  Company Number: US-PFIZER INC-2010065264

PATIENT
  Sex: Male
  Weight: 96.1 kg

DRUGS (11)
  1. SUTENT [Suspect]
     Indication: METASTATIC RENAL CELL CARCINOMA
     Dosage: 50 MG, 1X/DAY
     Route: 048
     Dates: start: 20100301
  2. CARBOPLATIN [Suspect]
     Indication: NEOPLASM MALIGNANT
     Dosage: UNK
  3. ETOPOSIDE [Suspect]
     Indication: NEOPLASM MALIGNANT
     Dosage: UNK
  4. KLOR-CON [Concomitant]
     Indication: MINERAL SUPPLEMENTATION
     Dosage: 20 MEQ, UNK
     Route: 048
  5. CLONAZEPAM [Concomitant]
     Indication: NERVOUSNESS
     Dosage: 2 MG, 2X/DAY
     Route: 048
  6. SANDOSTATIN [Concomitant]
     Indication: CARCINOID SYNDROME
     Dosage: 100 UG, 2X/DAY
     Route: 048
  7. LEVOTHYROXINE [Concomitant]
     Indication: HYPOTHYROIDISM
     Dosage: 137 UG, 1X/DAY
     Route: 048
  8. PROCHLORPERAZINE [Concomitant]
     Indication: VOMITING
     Dosage: 10 MG, AS NEEDED
     Route: 048
  9. LASIX [Concomitant]
  10. LACTULOSE [Concomitant]
  11. BENICAR [Concomitant]
     Dosage: UNK

REACTIONS (7)
  - DEPRESSED LEVEL OF CONSCIOUSNESS [None]
  - FLUID RETENTION [None]
  - HYPERBILIRUBINAEMIA [None]
  - JOINT SWELLING [None]
  - PLATELET COUNT ABNORMAL [None]
  - SWELLING FACE [None]
  - WHITE BLOOD CELL COUNT DECREASED [None]
